FAERS Safety Report 21905097 (Version 1)
Quarter: 2023Q1

REPORT INFORMATION
  Report Type: Spontaneous
  Country: US (occurrence: None)
  Receive Date: 20230123
  Receipt Date: 20230123
  Transmission Date: 20230417
  Serious: Yes (Other)
  Sender: FDA-Public Use
  Company Number: None

PATIENT
  Age: 73 Year
  Sex: Male

DRUGS (1)
  1. ALPROSTADIL\PAPAVERINE\PHENTOLAMINE [Suspect]
     Active Substance: ALPROSTADIL\PAPAVERINE\PHENTOLAMINE
     Indication: Erectile dysfunction
     Dosage: FREQUENCY : AS NEEDED;?
     Route: 058
     Dates: start: 20220829

REACTIONS (3)
  - Penile swelling [None]
  - Penile discomfort [None]
  - Injection site reaction [None]

NARRATIVE: CASE EVENT DATE: 20230119
